FAERS Safety Report 6646772-7 (Version None)
Quarter: 2010Q1

REPORT INFORMATION
  Report Type: 
  Country: None (occurrence: None)
  Receive Date: 20100323
  Receipt Date: 20100312
  Transmission Date: 20100710
  Serious: Yes (Disabling)
  Sender: FDA-Public Use
  Company Number: JP-ROCHE-691967

PATIENT
  Sex: Male

DRUGS (5)
  1. TAMIFLU [Suspect]
     Indication: INFLUENZA
     Route: 048
     Dates: start: 20091125, end: 20091125
  2. TAMIFLU [Suspect]
     Route: 048
     Dates: start: 20091126, end: 20091129
  3. TAMIFLU [Suspect]
     Route: 048
     Dates: start: 20091130, end: 20091130
  4. CALONAL [Concomitant]
     Dosage: NOTE: TAKEN AS NEEDED
     Route: 048
  5. CALONAL [Concomitant]
     Dosage: NOTE: TAKEN AS NEEDED
     Route: 048

REACTIONS (1)
  - ENCEPHALOPATHY [None]
